FAERS Safety Report 9511149 (Version 1)
Quarter: 2013Q3

REPORT INFORMATION
  Report Type: Spontaneous
  Country: US (occurrence: None)
  Receive Date: 20130909
  Receipt Date: 20130909
  Transmission Date: 20140515
  Serious: Yes (Life-Threatening, Hospitalization)
  Sender: FDA-Public Use
  Company Number: None

PATIENT
  Age: 79 Year
  Sex: Female
  Weight: 60.6 kg

DRUGS (13)
  1. METHOTREXATE [Suspect]
     Indication: SYSTEMIC LUPUS ERYTHEMATOSUS
     Route: 048
     Dates: start: 20130822, end: 20130830
  2. PRILOSEC [Concomitant]
  3. ALLOPURINOL [Concomitant]
  4. NORVASC [Concomitant]
  5. LOSARTAN [Concomitant]
  6. LABETALOL [Concomitant]
  7. RENANGEL [Concomitant]
  8. CALCIUM CARBONATE [Concomitant]
  9. ASPIRIN [Concomitant]
  10. FLORASTOR [Concomitant]
  11. FOLIC ACID [Concomitant]
  12. PREDNISONE [Concomitant]
  13. VITAMIN D [Concomitant]

REACTIONS (6)
  - Pancytopenia [None]
  - Mucosal inflammation [None]
  - Swollen tongue [None]
  - Pharyngeal oedema [None]
  - Blister [None]
  - Convulsion [None]
